FAERS Safety Report 11080524 (Version 2)
Quarter: 2015Q2

REPORT INFORMATION
  Report Type: Spontaneous
  Country: DE (occurrence: DE)
  Receive Date: 20150501
  Receipt Date: 20150501
  Transmission Date: 20150821
  Serious: Yes (Other)
  Sender: FDA-Public Use
  Company Number: GXKR2015DE002220

PATIENT

DRUGS (3)
  1. FOLIO FORTE [Concomitant]
     Active Substance: FOLIC ACID\VITAMINS
     Indication: PROPHYLAXIS OF NEURAL TUBE DEFECT
     Dosage: 0. -  40.4 GESTATIONAL WEEK: 0.8 [MG/D]
     Route: 048
     Dates: start: 20140222, end: 20141203
  2. CYTOTEC [Concomitant]
     Active Substance: MISOPROSTOL
     Indication: LABOUR INDUCTION
     Route: 048
  3. CLOZAPINE. [Suspect]
     Active Substance: CLOZAPINE
     Indication: PSYCHOTIC DISORDER
     Dosage: 25 [MG/D ]
     Route: 048
     Dates: start: 20140222, end: 20141203

REACTIONS (2)
  - Gestational diabetes [Unknown]
  - Polyhydramnios [Recovered/Resolved]
